FAERS Safety Report 7419804-6 (Version None)
Quarter: 2011Q2

REPORT INFORMATION
  Report Type: 
  Country: None (occurrence: None)
  Receive Date: 20110413
  Receipt Date: 20110413
  Transmission Date: 20111010
  Serious: Yes (Life-Threatening)
  Sender: FDA-Public Use
  Company Number: None

PATIENT
  Age: 70 Year
  Sex: Male
  Weight: 73.8 kg

DRUGS (1)
  1. PHYTONADIONE [Suspect]
     Indication: COAGULOPATHY
     Dosage: 10 MG ONCE IV DRIP
     Route: 041
     Dates: start: 20110412, end: 20110412

REACTIONS (4)
  - BLOOD PRESSURE DECREASED [None]
  - RESPIRATORY FAILURE [None]
  - CARDIAC FAILURE [None]
  - ERYTHEMA [None]
